FAERS Safety Report 9810681 (Version 2)
Quarter: 2015Q4

REPORT INFORMATION
  Report Type: Spontaneous
  Country: US (occurrence: US)
  Receive Date: 20140110
  Receipt Date: 20151228
  Transmission Date: 20160305
  Serious: Yes (Death)
  Sender: FDA-Public Use
  Company Number: US-SANOFI-AVENTIS-2013SA086554

PATIENT

DRUGS (5)
  1. ASPIRIN. [Concomitant]
     Active Substance: ASPIRIN
     Dates: start: 20080209
  2. ASPIRIN. [Concomitant]
     Active Substance: ASPIRIN
     Dates: start: 20080216
  3. PLAVIX [Suspect]
     Active Substance: CLOPIDOGREL BISULFATE
     Indication: STENT PLACEMENT
     Route: 048
     Dates: start: 20080202
  4. COUMADIN [Concomitant]
     Active Substance: WARFARIN SODIUM
  5. PLAVIX [Suspect]
     Active Substance: CLOPIDOGREL BISULFATE
     Indication: STENT PLACEMENT
     Route: 048
     Dates: end: 20080226

REACTIONS (2)
  - Shock haemorrhagic [Fatal]
  - Haemorrhage [Fatal]
